FAERS Safety Report 12127886 (Version 1)
Quarter: 2016Q1

REPORT INFORMATION
  Report Type: Spontaneous
  Country: CH (occurrence: CH)
  Receive Date: 20160229
  Receipt Date: 20160229
  Transmission Date: 20160526
  Serious: Yes (Death)
  Sender: FDA-Public Use
  Company Number: CH-BAYER-2016-035442

PATIENT
  Age: 60 Year
  Sex: Male
  Weight: 83 kg

DRUGS (16)
  1. CLEXANE [Interacting]
     Active Substance: ENOXAPARIN SODIUM
     Indication: ATRIAL FIBRILLATION
     Dosage: 80 MG, BID
     Route: 058
     Dates: start: 20160109, end: 20160112
  2. BELOC [Suspect]
     Active Substance: METOPROLOL TARTRATE
     Indication: ISCHAEMIC CARDIOMYOPATHY
     Dosage: UNK
     Route: 048
     Dates: start: 20160113
  3. MICARDIS [Concomitant]
     Active Substance: TELMISARTAN
     Indication: HYPERTENSION
     Dosage: 80 MG, QD
     Route: 048
  4. AMLODIPIN [Concomitant]
     Active Substance: AMLODIPINE BESYLATE
     Indication: HYPERTENSION
     Dosage: 10 MG, QD
     Route: 048
     Dates: end: 20160108
  5. XARELTO [Interacting]
     Active Substance: RIVAROXABAN
     Indication: ATRIAL FIBRILLATION
     Dosage: 20 MG, QD
     Route: 048
     Dates: start: 20160113, end: 20160113
  6. BELOC [Suspect]
     Active Substance: METOPROLOL TARTRATE
     Indication: ISCHAEMIC CARDIOMYOPATHY
     Dosage: 50 MG, QD
     Route: 048
     Dates: end: 20160108
  7. DIAMICRON [Concomitant]
     Active Substance: GLICLAZIDE
     Indication: DIABETES MELLITUS
     Dosage: 60 MG, QD
     Route: 048
  8. PREDNISON [Interacting]
     Active Substance: PREDNISONE
     Indication: POLYARTHRITIS
     Dosage: 10 MG, QD
     Route: 048
     Dates: start: 20160112, end: 20160112
  9. CORDARONE [Interacting]
     Active Substance: AMIODARONE HYDROCHLORIDE
     Indication: ATRIAL FIBRILLATION
     Dosage: 200 MG, TID
     Route: 048
     Dates: start: 20160109
  10. CO AMOXICLAV [Concomitant]
     Active Substance: AMOXICILLIN\CLAVULANIC ACID
     Indication: ERYSIPELAS
     Dosage: 1.2 G, QID
     Route: 048
     Dates: start: 20160110
  11. PREDNISON [Interacting]
     Active Substance: PREDNISONE
     Indication: POLYARTHRITIS
     Dosage: 15 MG, QD
     Route: 048
     Dates: start: 20160113, end: 20160113
  12. DILTIAZEM [Interacting]
     Active Substance: DILTIAZEM
     Indication: ATRIAL FIBRILLATION
     Dosage: 60 MG, BID
     Route: 048
     Dates: start: 20160109, end: 20160112
  13. XENALON [Concomitant]
     Dosage: 50 MG, QD
     Route: 048
     Dates: end: 20160108
  14. ATORVASTATIN [Concomitant]
     Active Substance: ATORVASTATIN
     Indication: HYPERCHOLESTEROLAEMIA
     Dosage: 40 MG, QD
     Route: 048
  15. TOREM [Concomitant]
     Active Substance: TORSEMIDE
     Dosage: 5 MG, QD
     Route: 048
     Dates: end: 20160108
  16. ASPIRIN CARDIO [Interacting]
     Active Substance: ASPIRIN
     Indication: CORONARY ARTERY BYPASS
     Dosage: 100 MG, QD
     Route: 048
     Dates: end: 20160113

REACTIONS (6)
  - Haematochezia [Fatal]
  - Shock haemorrhagic [Fatal]
  - Multiple organ dysfunction syndrome [Fatal]
  - Gastric ulcer [Fatal]
  - Melaena [Fatal]
  - Drug interaction [Fatal]

NARRATIVE: CASE EVENT DATE: 20160109
